FAERS Safety Report 10478698 (Version 2)
Quarter: 2019Q1

REPORT INFORMATION
  Report Type: Spontaneous
  Country: ES (occurrence: ES)
  Receive Date: 20140926
  Receipt Date: 20190328
  Transmission Date: 20190417
  Serious: Yes (Hospitalization, Other)
  Sender: FDA-Public Use
  Company Number: PHHY2014ES122755

PATIENT
  Age: 61 Year
  Sex: Male

DRUGS (1)
  1. PIPERACILLIN AND TAZOBACTAM [Suspect]
     Active Substance: PIPERACILLIN SODIUM\TAZOBACTAM SODIUM
     Indication: PRODUCT USED FOR UNKNOWN INDICATION
     Dosage: UNK
     Route: 065

REACTIONS (9)
  - Leukocytosis [Recovered/Resolved]
  - Productive cough [Recovered/Resolved]
  - Respiratory failure [Recovered/Resolved]
  - Diarrhoea [Recovered/Resolved]
  - Eosinophilic pneumonia acute [Recovered/Resolved]
  - Cough [Recovered/Resolved]
  - Sepsis [Recovered/Resolved]
  - Dyspnoea [Recovered/Resolved]
  - Pyrexia [Recovered/Resolved]
